FAERS Safety Report 14953611 (Version 2)
Quarter: 2018Q2

REPORT INFORMATION
  Report Type: Spontaneous
  Country: IT (occurrence: IT)
  Receive Date: 20180530
  Receipt Date: 20180604
  Transmission Date: 20180711
  Serious: Yes (Hospitalization)
  Sender: FDA-Public Use
  Company Number: IT-ALLERGAN-1828334US

PATIENT
  Age: 3 Year
  Sex: Female

DRUGS (1)
  1. ATROPINA LUX 0.5% [Suspect]
     Active Substance: ATROPINE SULFATE
     Indication: PRODUCT USED FOR UNKNOWN INDICATION
     Dosage: 3 GTT IN TOTAL
     Route: 047
     Dates: start: 20180519, end: 20180519

REACTIONS (2)
  - Incorrect dose administered [Unknown]
  - Tachycardia [Recovering/Resolving]

NARRATIVE: CASE EVENT DATE: 20180519
